FAERS Safety Report 7618348-6 (Version None)
Quarter: 2011Q3

REPORT INFORMATION
  Report Type: 
  Country: None (occurrence: None)
  Receive Date: 20110718
  Receipt Date: 20110706
  Transmission Date: 20111222
  Serious: Yes (Hospitalization, Other)
  Sender: FDA-Public Use
  Company Number: PHBS2003JP04755

PATIENT
  Sex: Male
  Weight: 64 kg

DRUGS (1)
  1. GLEEVEC [Suspect]
     Indication: CHRONIC MYELOID LEUKAEMIA
     Dosage: 400 MG,DAILY
     Route: 048
     Dates: start: 20030128, end: 20030415

REACTIONS (9)
  - DIFFUSE ALVEOLAR DAMAGE [None]
  - INTERSTITIAL LUNG DISEASE [None]
  - WHITE BLOOD CELL COUNT INCREASED [None]
  - DYSPNOEA [None]
  - EOSINOPHIL COUNT INCREASED [None]
  - PULMONARY EOSINOPHILIA [None]
  - BLOOD LACTATE DEHYDROGENASE INCREASED [None]
  - CHEST X-RAY ABNORMAL [None]
  - PLATELET COUNT DECREASED [None]
